FAERS Safety Report 7025365-6 (Version None)
Quarter: 2010Q4

REPORT INFORMATION
  Report Type: 
  Country: None (occurrence: None)
  Receive Date: 20101001
  Receipt Date: 20100920
  Transmission Date: 20110411
  Serious: Yes (Other)
  Sender: FDA-Public Use
  Company Number: PHHY2010MX63295

PATIENT
  Age: 65 Year
  Sex: Female

DRUGS (1)
  1. DIOVAN HCT [Suspect]
     Dosage: 1 TABLET (UNKNOWN MG) PER DAY
     Route: 048

REACTIONS (1)
  - ACUTE MYOCARDIAL INFARCTION [None]
